FAERS Safety Report 21049454 (Version 1)
Quarter: 2022Q3

REPORT INFORMATION
  Report Type: Spontaneous
  Country: US (occurrence: US)
  Receive Date: 20220706
  Receipt Date: 20220706
  Transmission Date: 20221026
  Serious: Yes (Other)
  Sender: FDA-Public Use
  Company Number: US-FreseniusKabi-FK202209435

PATIENT
  Age: 22 Year
  Sex: Female

DRUGS (11)
  1. PROPOFOL [Suspect]
     Active Substance: PROPOFOL
     Indication: Sedation
     Dosage: UNK
     Route: 065
  2. FENTANYL [Concomitant]
     Active Substance: FENTANYL
     Indication: Sedation
     Route: 065
  3. ACETAZOLAMIDE [Concomitant]
     Active Substance: ACETAZOLAMIDE
     Indication: Intracranial pressure increased
     Route: 065
  4. MIDAZOLAM [Concomitant]
     Active Substance: MIDAZOLAM
     Indication: Intracranial pressure increased
     Route: 065
  5. DEXAMETHASONE [Concomitant]
     Active Substance: DEXAMETHASONE
     Indication: Intracranial pressure increased
     Route: 065
  6. SUCCIMER [Concomitant]
     Active Substance: SUCCIMER
     Indication: Chelation therapy
     Route: 065
  7. DIMERCAPROL [Concomitant]
     Active Substance: DIMERCAPROL
     Indication: Chelation therapy
     Route: 030
  8. HEMATIN [Concomitant]
     Active Substance: HEMATIN
     Indication: Porphyria acute
     Route: 065
  9. CISATRACURIUM BESYLATE [Concomitant]
     Active Substance: CISATRACURIUM BESYLATE
     Indication: Intracranial pressure increased
     Route: 065
  10. LIDOCAINE [Concomitant]
     Active Substance: LIDOCAINE
     Indication: Pain
     Route: 065
  11. HYDROMORPHONE [Concomitant]
     Active Substance: HYDROMORPHONE
     Indication: Intracranial pressure increased
     Route: 065

REACTIONS (3)
  - Propofol infusion syndrome [Unknown]
  - Hypertransaminasaemia [Unknown]
  - Hypertriglyceridaemia [Unknown]
